FAERS Safety Report 12255559 (Version 1)
Quarter: 2016Q2

REPORT INFORMATION
  Report Type: Spontaneous
  Country: US (occurrence: US)
  Receive Date: 20160412
  Receipt Date: 20160412
  Transmission Date: 20160815
  Serious: No
  Sender: FDA-Public Use
  Company Number: US-AUROBINDO-AUR-APL-2013-04627

PATIENT
  Sex: Male
  Weight: 100 kg

DRUGS (7)
  1. LYRICA [Interacting]
     Active Substance: PREGABALIN
     Dosage: 100 MG, TWO TIMES A DAY
     Route: 065
     Dates: start: 2013
  2. ASPIRIN. [Interacting]
     Active Substance: ASPIRIN
     Indication: BLOOD DISORDER
     Dosage: 81 MG,ONCE A DAY,
     Route: 065
     Dates: start: 1992
  3. TRAMADOL. [Interacting]
     Active Substance: TRAMADOL
     Indication: PAIN IN EXTREMITY
     Dosage: 50 MG,AS NECESSARY,
     Route: 065
     Dates: start: 2005
  4. LYRICA [Interacting]
     Active Substance: PREGABALIN
     Indication: NEUROPATHY PERIPHERAL
     Dosage: 150 MG, TWO TIMES A DAY
     Route: 065
     Dates: start: 2009
  5. OMEPRAZOLE. [Interacting]
     Active Substance: OMEPRAZOLE
     Indication: GASTRIC DISORDER
     Dosage: 20 MG,ONCE A DAY,
     Route: 065
     Dates: start: 2002
  6. QUINAPRIL. [Interacting]
     Active Substance: QUINAPRIL
     Indication: PROPHYLAXIS
     Dosage: 20 MG,ONCE A DAY,
     Route: 065
     Dates: start: 2002
  7. METFORMIN HYDROCHLORIDE TABLETS USP 1000 MG [Suspect]
     Active Substance: METFORMIN HYDROCHLORIDE
     Indication: DIABETES MELLITUS
     Dosage: 100 MG,TWO TIMES A DAY,
     Route: 065
     Dates: start: 2000

REACTIONS (6)
  - Pain in extremity [Not Recovered/Not Resolved]
  - Drug interaction [Unknown]
  - Burning sensation [Not Recovered/Not Resolved]
  - Pain [Not Recovered/Not Resolved]
  - Insomnia [Not Recovered/Not Resolved]
  - Drug ineffective [Unknown]

NARRATIVE: CASE EVENT DATE: 2013
